FAERS Safety Report 6609104-6 (Version None)
Quarter: 2010Q1

REPORT INFORMATION
  Report Type: 
  Country: None (occurrence: None)
  Receive Date: 20100226
  Receipt Date: 20100226
  Transmission Date: 20100710
  Serious: Yes (Hospitalization)
  Sender: FDA-Public Use
  Company Number: None

PATIENT
  Age: 57 Year
  Sex: Female
  Weight: 51 kg

DRUGS (1)
  1. TEGRETOL [Suspect]
     Indication: TRIGEMINAL NEURALGIA
     Dosage: ORAL 047
     Route: 048

REACTIONS (4)
  - JAUNDICE [None]
  - MENTAL STATUS CHANGES [None]
  - PNEUMONIA KLEBSIELLA [None]
  - RENAL FAILURE [None]
